FAERS Safety Report 18731038 (Version 1)
Quarter: 2021Q1

REPORT INFORMATION
  Report Type: Spontaneous
  Country: CA (occurrence: CA)
  Receive Date: 20210112
  Receipt Date: 20210112
  Transmission Date: 20210419
  Serious: Yes (Hospitalization, Other)
  Sender: FDA-Public Use
  Company Number: CA-JNJFOC-20210108451

PATIENT
  Age: 51 Year
  Sex: Female
  Weight: 92 kg

DRUGS (1)
  1. INFLIXIMAB, RECOMBINANT [Suspect]
     Active Substance: INFLIXIMAB
     Indication: CROHN^S DISEASE
     Route: 042

REACTIONS (5)
  - Pericarditis [Unknown]
  - Off label use [Unknown]
  - Arthralgia [Unknown]
  - Intentional product use issue [Unknown]
  - Pericardial effusion [Unknown]
